FAERS Safety Report 24988083 (Version 1)
Quarter: 2025Q1

REPORT INFORMATION
  Report Type: Spontaneous
  Country: FR (occurrence: FR)
  Receive Date: 20250220
  Receipt Date: 20250220
  Transmission Date: 20250409
  Serious: Yes (Other)
  Sender: BRISTOL-MYERS SQUIBB COMPANY
  Company Number: None

PATIENT
  Age: 72 Year
  Sex: Female
  Weight: 67 kg

DRUGS (2)
  1. YERVOY [Suspect]
     Active Substance: IPILIMUMAB
     Indication: Metastatic malignant melanoma
     Route: 042
     Dates: start: 20241024, end: 20241114
  2. OPDIVO [Suspect]
     Active Substance: NIVOLUMAB
     Indication: Metastatic malignant melanoma
     Route: 042
     Dates: start: 20241024, end: 20241114

REACTIONS (2)
  - Cholestatic liver injury [Recovering/Resolving]
  - Off label use [Unknown]

NARRATIVE: CASE EVENT DATE: 20241210
